FAERS Safety Report 7313234-3 (Version None)
Quarter: 2011Q1

REPORT INFORMATION
  Report Type: 
  Country: None (occurrence: None)
  Receive Date: 20110225
  Receipt Date: 20110217
  Transmission Date: 20110831
  Serious: Yes (Hospitalization)
  Sender: FDA-Public Use
  Company Number: FR-JNJFOC-20110105444

PATIENT
  Sex: Male

DRUGS (9)
  1. TERALITHE [Concomitant]
     Route: 065
  2. RIVOTRIL [Concomitant]
     Route: 065
  3. LOVENOX [Concomitant]
     Route: 065
  4. EFFEXOR [Concomitant]
     Route: 065
  5. ACETAMINOPHEN [Concomitant]
     Route: 065
  6. DURAGESIC-100 [Suspect]
     Indication: ILL-DEFINED DISORDER
     Route: 062
  7. NEO-MERCAZOLE TAB [Concomitant]
     Route: 065
  8. TIORFAN [Suspect]
     Indication: DIARRHOEA
     Route: 048
  9. ATENOLOL [Concomitant]
     Route: 065

REACTIONS (2)
  - FAECALOMA [None]
  - SUBILEUS [None]
